FAERS Safety Report 7688519-1 (Version None)
Quarter: 2011Q3

REPORT INFORMATION
  Report Type: 
  Country: None (occurrence: None)
  Receive Date: 20110817
  Receipt Date: 20110815
  Transmission Date: 20111222
  Serious: Yes (Death)
  Sender: FDA-Public Use
  Company Number: MX-PFIZER INC-2011188465

PATIENT
  Age: 83 Year
  Sex: Female

DRUGS (2)
  1. TOLTERODINE TARTRATE [Suspect]
  2. NORVASC [Suspect]

REACTIONS (1)
  - DEATH [None]
